FAERS Safety Report 7761455-8 (Version None)
Quarter: 2011Q3

REPORT INFORMATION
  Report Type: 
  Country: None (occurrence: None)
  Receive Date: 20110920
  Receipt Date: 20110909
  Transmission Date: 20111222
  Serious: Yes (Hospitalization)
  Sender: FDA-Public Use
  Company Number: US-US-EMD SERONO, INC.-7080549

PATIENT
  Sex: Male

DRUGS (1)
  1. REBIF [Suspect]
     Indication: MULTIPLE SCLEROSIS
     Route: 058
     Dates: start: 20101006

REACTIONS (4)
  - GASTRIC ULCER HAEMORRHAGE [None]
  - MULTIPLE SCLEROSIS [None]
  - UPPER GASTROINTESTINAL HAEMORRHAGE [None]
  - DEHYDRATION [None]
